FAERS Safety Report 11047230 (Version 2)
Quarter: 2015Q2

REPORT INFORMATION
  Report Type: Spontaneous
  Country: GB (occurrence: None)
  Receive Date: 20150416
  Receipt Date: 20150520
  Transmission Date: 20150821
  Serious: Yes (Life-Threatening)
  Sender: FDA-Public Use
  Company Number: PI-11069

PATIENT
  Age: 53 Year
  Sex: Male

DRUGS (10)
  1. DILTIAZEM [Concomitant]
     Active Substance: DILTIAZEM
  2. MIDAZOLAM [Concomitant]
     Active Substance: MIDAZOLAM\MIDAZOLAM HYDROCHLORIDE
  3. LANSOPRAZOLE. [Concomitant]
     Active Substance: LANSOPRAZOLE
  4. CHLORAPREP [Suspect]
     Active Substance: CHLORHEXIDINE GLUCONATE\ISOPROPYL ALCOHOL
     Indication: THERAPEUTIC SKIN CARE TOPICAL
     Route: 061
     Dates: start: 20130319
  5. BISOPROLOL [Concomitant]
     Active Substance: BISOPROLOL
  6. ASPIRIN. [Concomitant]
     Active Substance: ASPIRIN
  7. WARFARIN [Concomitant]
     Active Substance: WARFARIN
  8. METOPROLOL [Concomitant]
     Active Substance: METOPROLOL
  9. XYLOCAINE [Concomitant]
     Active Substance: LIDOCAINE HYDROCHLORIDE
  10. MAGNESIUM SULFATE. [Concomitant]
     Active Substance: MAGNESIUM SULFATE

REACTIONS (7)
  - Urticaria [None]
  - Respiratory arrest [None]
  - Dyspnoea [None]
  - Anaphylactic reaction [None]
  - Drug hypersensitivity [None]
  - Atrial tachycardia [None]
  - Wheezing [None]

NARRATIVE: CASE EVENT DATE: 20130321
